FAERS Safety Report 16426184 (Version 1)
Quarter: 2019Q2

REPORT INFORMATION
  Report Type: Spontaneous
  Country: US (occurrence: US)
  Receive Date: 20190507
  Receipt Date: 20190507
  Transmission Date: 20190711
  Serious: No
  Sender: FDA-Public Use
  Company Number: None

PATIENT
  Age: 63 Year
  Sex: Female

DRUGS (3)
  1. LETROZOLE. [Concomitant]
     Active Substance: LETROZOLE
  2. XGEVA [Concomitant]
     Active Substance: DENOSUMAB
  3. IBRANCE [Suspect]
     Active Substance: PALBOCICLIB
     Indication: BREAST CANCER
     Dosage: OTHER
     Route: 048
     Dates: start: 201903

REACTIONS (1)
  - Fatigue [None]

NARRATIVE: CASE EVENT DATE: 20190405
